FAERS Safety Report 24382569 (Version 5)
Quarter: 2025Q1

REPORT INFORMATION
  Report Type: Report from Study
  Country: DE (occurrence: DE)
  Receive Date: 20241001
  Receipt Date: 20250219
  Transmission Date: 20250409
  Serious: Yes (Hospitalization)
  Sender: INSMED
  Company Number: DE-INSMED, INC.-2024-01392-DE

PATIENT
  Sex: Female

DRUGS (5)
  1. ARIKAYCE [Suspect]
     Active Substance: AMIKACIN
     Indication: Atypical mycobacterial infection
     Dosage: 295 MILLIGRAM, QD
     Route: 055
     Dates: start: 20211103, end: 20240329
  2. ARIKAYCE [Suspect]
     Active Substance: AMIKACIN
     Dosage: 295 MILLIGRAM, QD
     Route: 055
     Dates: start: 20240405, end: 202409
  3. ARIKAYCE [Suspect]
     Active Substance: AMIKACIN
     Dosage: 295 MILLIGRAM, QD
     Route: 055
     Dates: start: 202409, end: 20241105
  4. ARIKAYCE [Suspect]
     Active Substance: AMIKACIN
     Dosage: 295 MILLIGRAM, QD
     Route: 055
     Dates: start: 20241128, end: 20241231
  5. ARIKAYCE [Suspect]
     Active Substance: AMIKACIN
     Dosage: 295 MILLIGRAM, QD
     Route: 055
     Dates: start: 20250117

REACTIONS (5)
  - Hospitalisation [Unknown]
  - Intentional dose omission [Unknown]
  - Underdose [Unknown]
  - Off label use [Unknown]
  - Therapy interrupted [Unknown]
